FAERS Safety Report 9026049 (Version 1)
Quarter: 2012Q4

REPORT INFORMATION
  Report Type: Spontaneous
  Country: US (occurrence: None)
  Receive Date: 20121214
  Receipt Date: 20121214
  Transmission Date: 20130627
  Serious: Yes (Life-Threatening, Hospitalization, Disabling)
  Sender: FDA-Public Use
  Company Number: None

PATIENT
  Sex: Female
  Weight: 109.77 kg

DRUGS (1)
  1. MIRENA IUD BAYER [Suspect]
     Dates: start: 200909, end: 201210

REACTIONS (11)
  - Abdominal pain [None]
  - Device dislocation [None]
  - Uterine dilation and curettage [None]
  - Uterine perforation [None]
  - Pain [None]
  - Weight increased [None]
  - Alopecia [None]
  - Impaired work ability [None]
  - Device breakage [None]
  - Frustration [None]
  - Cervix haemorrhage uterine [None]
